FAERS Safety Report 21882578 (Version 1)
Quarter: 2023Q1

REPORT INFORMATION
  Report Type: Report from Study
  Country: US (occurrence: US)
  Receive Date: 20230119
  Receipt Date: 20230119
  Transmission Date: 20230418
  Serious: Yes (Hospitalization, Other)
  Sender: FDA-Public Use
  Company Number: US-SUN PHARMACEUTICAL INDUSTRIES LTD-2023R1-373267

PATIENT
  Age: 71 Year
  Sex: Female

DRUGS (3)
  1. MYCOPHENOLATE MOFETIL [Suspect]
     Active Substance: MYCOPHENOLATE MOFETIL
     Indication: Immunosuppression
     Dosage: UNK
     Route: 065
  2. PREDNISONE [Suspect]
     Active Substance: PREDNISONE
     Indication: Immunosuppression
     Dosage: UNK
     Route: 065
  3. DAPSONE [Suspect]
     Active Substance: DAPSONE
     Indication: Immunosuppression
     Dosage: UNK
     Route: 065

REACTIONS (3)
  - Cytomegalovirus colitis [Unknown]
  - Gastrointestinal haemorrhage [Unknown]
  - Colitis [Unknown]
